FAERS Safety Report 15542871 (Version 1)
Quarter: 2018Q4

REPORT INFORMATION
  Report Type: Spontaneous
  Country: US (occurrence: US)
  Receive Date: 20181017
  Receipt Date: 20181017
  Transmission Date: 20190205
  Serious: No
  Sender: FDA-Public Use
  Company Number: None

PATIENT
  Age: 73 Year
  Sex: Female
  Weight: 86.18 kg

DRUGS (10)
  1. BIOTIN [Concomitant]
     Active Substance: BIOTIN
  2. ATORVASTATIN [Concomitant]
     Active Substance: ATORVASTATIN
  3. EYECAPS [Concomitant]
  4. ESOMEPRAZOLE. [Concomitant]
     Active Substance: ESOMEPRAZOLE MAGNESIUM
  5. CELECOXIB. [Concomitant]
     Active Substance: CELECOXIB
  6. CELECOXIB 200MG CAP [Suspect]
     Active Substance: CELECOXIB
     Indication: OSTEOARTHRITIS
     Dosage: ?          QUANTITY:200 ML MILLILITRE(S);?
     Route: 048
     Dates: start: 20180905, end: 20180926
  7. CITRICAL [Concomitant]
     Active Substance: CALCIUM CITRATE
  8. CELECOXIB 200MG CAP [Suspect]
     Active Substance: CELECOXIB
     Indication: RHEUMATOID ARTHRITIS
     Dosage: ?          QUANTITY:200 ML MILLILITRE(S);?
     Route: 048
     Dates: start: 20180905, end: 20180926
  9. LOSARTAN. [Concomitant]
     Active Substance: LOSARTAN
  10. VITAMIN D3 [Concomitant]
     Active Substance: CHOLECALCIFEROL

REACTIONS (2)
  - Pain [None]
  - Product substitution issue [None]

NARRATIVE: CASE EVENT DATE: 20180905
